FAERS Safety Report 18857565 (Version 3)
Quarter: 2021Q2

REPORT INFORMATION
  Report Type: Spontaneous
  Country: FI (occurrence: FI)
  Receive Date: 20210208
  Receipt Date: 20210421
  Transmission Date: 20210717
  Serious: Yes (Hospitalization)
  Sender: FDA-Public Use
  Company Number: FI-SA-2021SA036130

PATIENT
  Age: 68 Year
  Sex: Female

DRUGS (33)
  1. DUPIXENT [Suspect]
     Active Substance: DUPILUMAB
     Indication: ASTHMA
     Dosage: 300 MG, BID
     Dates: start: 20210120, end: 20210120
  2. INNOVAIR [Concomitant]
     Active Substance: BECLOMETHASONE DIPROPIONATE\FORMOTEROL
     Indication: ASTHMA
     Dosage: 200 [?G]/6 ?G 2 X 2
     Dates: start: 20191216
  3. MULTIVITA PLUS [Concomitant]
     Dosage: UNK
     Dates: start: 20191121
  4. MICARDIS PLUS [Concomitant]
     Active Substance: HYDROCHLOROTHIAZIDE\TELMISARTAN
     Indication: HYPERTENSION
     Dosage: 80MG/25MG
     Dates: start: 20180912
  5. DESLORATADINE. [Concomitant]
     Active Substance: DESLORATADINE
     Dosage: 5MG
     Dates: start: 20191121
  6. EMGESAN [Concomitant]
     Active Substance: MAGNESIUM HYDROXIDE
     Dosage: 250MG
     Dates: start: 20210127, end: 20210128
  7. ALVESCO [Concomitant]
     Active Substance: CICLESONIDE
     Indication: ASTHMA
     Dosage: 160 UG
  8. DAPAGLIFLOZIN. [Concomitant]
     Active Substance: DAPAGLIFLOZIN
     Dosage: 10MG
     Dates: start: 20201102
  9. TRIOBE [CYANOCOBALAMIN;FOLIC ACID;PYRIDOXINE HYDROCHLORIDE] [Concomitant]
     Active Substance: CYANOCOBALAMIN\FOLIC ACID\PYRIDOXINE HYDROCHLORIDE
     Dosage: UNK
     Dates: start: 20191115
  10. ORLOC [Concomitant]
     Active Substance: BISOPROLOL FUMARATE
     Indication: HYPERTENSION
     Dosage: 5MG
     Dates: start: 20170123
  11. PREDNISOLONE. [Concomitant]
     Active Substance: PREDNISOLONE
     Dosage: UNK
     Dates: start: 20201110
  12. VOLTAREN FORTE [DICLOFENAC DIETHYLAMINE] [Concomitant]
     Active Substance: DICLOFENAC DIETHYLAMINE
     Dosage: UNK UNK, PRN
     Dates: start: 20171016
  13. KALCIPOS D [Concomitant]
     Active Substance: CALCIUM CARBONATE\CHOLECALCIFEROL
     Dosage: 500MG/10UG
     Dates: start: 20200221
  14. PRIMASPAN [Concomitant]
     Active Substance: ASPIRIN
     Dosage: 100MG
     Dates: start: 20200311
  15. LIPITOR [Concomitant]
     Active Substance: ATORVASTATIN CALCIUM
     Indication: HYPERCHOLESTEROLAEMIA
     Dosage: 10MG
     Dates: start: 20170608
  16. TIZANIDINE. [Concomitant]
     Active Substance: TIZANIDINE
     Dosage: 4MG
     Dates: start: 20170824
  17. PARACETAMOL [Concomitant]
     Active Substance: ACETAMINOPHEN
     Dosage: 1 G
     Dates: start: 20170407
  18. FLUTICASONE PROPIONATE. [Concomitant]
     Active Substance: FLUTICASONE PROPIONATE
     Dosage: UNK
     Dates: start: 20170823
  19. SINGULAIR [Concomitant]
     Active Substance: MONTELUKAST SODIUM
     Indication: ASTHMA
     Dosage: 10MG
     Dates: start: 20180214
  20. DINIT [ISOSORBIDE DINITRATE] [Concomitant]
     Dosage: UNK UNK, PRN
     Dates: start: 20200124
  21. LERCANIDIPINE HYDROCHLORIDE [Concomitant]
     Active Substance: LERCANIDIPINE HYDROCHLORIDE
     Indication: HYPERTENSION
     Dosage: 10MG
     Dates: start: 20170908
  22. LEVOTHYROXINE SODIUM. [Concomitant]
     Active Substance: LEVOTHYROXINE SODIUM
     Dosage: 100 UG
     Dates: start: 20190103
  23. VENTOLINE [SALBUTAMOL] [Concomitant]
     Active Substance: ALBUTEROL SULFATE
     Indication: ASTHMA
  24. IBUPROFEN. [Concomitant]
     Active Substance: IBUPROFEN
     Indication: PYREXIA
     Dosage: 600MG
  25. CARTEXAN [Concomitant]
     Active Substance: CHONDROITIN SULFATE SODIUM NOS
     Dosage: 400MG
     Dates: start: 20170405
  26. ERDOSTEINE [Concomitant]
     Active Substance: ERDOSTEINE
     Dosage: 300MG
     Dates: start: 20180403
  27. NEXIUM [Concomitant]
     Active Substance: ESOMEPRAZOLE MAGNESIUM
     Dosage: 20MG
     Dates: start: 20170407
  28. MELATONIN [Concomitant]
     Active Substance: MELATONIN
     Dosage: 3MG
     Dates: start: 20170823
  29. CICLESONIDE [Concomitant]
     Active Substance: CICLESONIDE
  30. SPIRIVA [Concomitant]
     Active Substance: TIOTROPIUM BROMIDE MONOHYDRATE
     Indication: ASTHMA
     Dosage: 160 UG
     Dates: start: 20200311
  31. VITAMIN D [VITAMIN D NOS] [Concomitant]
     Active Substance: VITAMIN D NOS
     Dosage: 25 UG
     Dates: start: 20191121
  32. JANUVIA [Concomitant]
     Active Substance: SITAGLIPTIN PHOSPHATE
     Dosage: 100MG
     Dates: start: 20201102
  33. DYMISTA [Concomitant]
     Active Substance: AZELASTINE HYDROCHLORIDE\FLUTICASONE PROPIONATE
     Dosage: 1X 2 WHEN NEEDED
     Dates: start: 20200602

REACTIONS (18)
  - Confusional state [Recovered/Resolved]
  - Body temperature increased [Recovered/Resolved]
  - Malaise [Recovered/Resolved]
  - Blood albumin decreased [Unknown]
  - Mean cell haemoglobin concentration decreased [Unknown]
  - Disorientation [Recovered/Resolved]
  - Feeling hot [Recovered/Resolved]
  - Leukocytosis [Recovered/Resolved]
  - Cognitive disorder [Recovered/Resolved]
  - Blood bicarbonate increased [Unknown]
  - Calcium ionised increased [Unknown]
  - Eosinophil count decreased [Unknown]
  - Headache [Recovered/Resolved]
  - Blood gases abnormal [Unknown]
  - Lymphocyte count increased [Unknown]
  - Neutrophil count increased [Unknown]
  - Red blood cell count increased [Unknown]
  - Blood glucose abnormal [Unknown]

NARRATIVE: CASE EVENT DATE: 202101
